FAERS Safety Report 14485870 (Version 1)
Quarter: 2018Q1

REPORT INFORMATION
  Report Type: Spontaneous
  Country: ES (occurrence: ES)
  Receive Date: 20180205
  Receipt Date: 20180205
  Transmission Date: 20180509
  Serious: Yes (Hospitalization)
  Sender: FDA-Public Use
  Company Number: ES-PFIZER INC-2018044300

PATIENT
  Age: 70 Year
  Sex: Female

DRUGS (1)
  1. IRINOTECAN HCL [Suspect]
     Active Substance: IRINOTECAN HYDROCHLORIDE
     Indication: COLON CANCER METASTATIC
     Dosage: 270 MG(NUMBER OF UNITS IN THE INTERVAL 14,DEFINITION OF THE TIME INTERVAL UNIT REPORTED AS DAY)
     Route: 042
     Dates: start: 20171003

REACTIONS (1)
  - Gastrointestinal toxicity [Recovered/Resolved]

NARRATIVE: CASE EVENT DATE: 20171024
